FAERS Safety Report 8308203-0 (Version None)
Quarter: 2012Q2

REPORT INFORMATION
  Report Type: 
  Country: None (occurrence: None)
  Receive Date: 20120424
  Receipt Date: 20120412
  Transmission Date: 20120825
  Serious: Yes (Other)
  Sender: FDA-Public Use
  Company Number: BR-ROCHE-1059564

PATIENT
  Sex: Female

DRUGS (10)
  1. FUCUS VESICULOSUS [Concomitant]
  2. ASCORBIC ACID [Concomitant]
  3. CASCARA SAGRADA [Concomitant]
  4. ARTICHOKE [Concomitant]
  5. ALLEGRA [Concomitant]
     Indication: PREMEDICATION
  6. VALERIAN [Concomitant]
  7. ACTEMRA [Suspect]
     Indication: PRODUCT USED FOR UNKNOWN INDICATION
     Dates: start: 20110428
  8. SPIRULINA [Concomitant]
  9. LEVOTHYROXINE SODIUM [Concomitant]
  10. GLUCOSAMINE SULFATE [Concomitant]

REACTIONS (6)
  - WEIGHT INCREASED [None]
  - NASOPHARYNGITIS [None]
  - BREAST MASS [None]
  - BLOOD TRIGLYCERIDES INCREASED [None]
  - FATIGUE [None]
  - SWELLING [None]
